FAERS Safety Report 5000758-7 (Version None)
Quarter: 2006Q2

REPORT INFORMATION
  Report Type: 
  Country: None (occurrence: None)
  Receive Date: 20060512
  Receipt Date: 20060307
  Transmission Date: 20061013
  Serious: Yes (Hospitalization, Other)
  Sender: FDA-Public Use
  Company Number: US-MERCK-0603USA01325

PATIENT
  Age: 64 Year
  Sex: Female
  Weight: 84 kg

DRUGS (8)
  1. VIOXX [Suspect]
     Indication: PAIN
     Route: 048
     Dates: start: 20030301, end: 20040801
  2. LIPITOR [Concomitant]
     Route: 065
  3. PAXIL [Concomitant]
     Route: 065
  4. DIOVAN [Concomitant]
     Route: 065
  5. GLUCOPHAGE [Concomitant]
     Route: 065
  6. NORVASC [Concomitant]
     Route: 065
  7. DIAZIDE [Concomitant]
     Route: 065
  8. TOPROL-XL [Concomitant]
     Route: 065

REACTIONS (2)
  - ANXIETY [None]
  - CEREBROVASCULAR ACCIDENT [None]
